FAERS Safety Report 26026648 (Version 1)
Quarter: 2025Q4

REPORT INFORMATION
  Report Type: Spontaneous
  Country: US (occurrence: US)
  Receive Date: 20251111
  Receipt Date: 20251111
  Transmission Date: 20260118
  Serious: No
  Sender: SANOFI AVENTIS
  Company Number: US-SA-2025SA334294

PATIENT
  Sex: Female
  Weight: 56.82 kg

DRUGS (6)
  1. DUPIXENT [Suspect]
     Active Substance: DUPILUMAB
     Indication: Neurodermatitis
     Dosage: 300 MG, QOW
     Route: 058
  2. XANAX [Concomitant]
     Active Substance: ALPRAZOLAM
  3. ABILIFY [Concomitant]
     Active Substance: ARIPIPRAZOLE
  4. BUPROPION HYDROCHLORIDE [Concomitant]
     Active Substance: BUPROPION HYDROCHLORIDE
  5. SERTRALINE HYDROCHLORIDE [Concomitant]
     Active Substance: SERTRALINE HYDROCHLORIDE
  6. ADDERALL [Concomitant]
     Active Substance: AMPHETAMINE ASPARTATE\AMPHETAMINE SULFATE\DEXTROAMPHETAMINE SACCHARATE\DEXTROAMPHETAMINE SULFATE

REACTIONS (6)
  - Eye irritation [Recovering/Resolving]
  - Neurodermatitis [Recovering/Resolving]
  - Blister [Recovering/Resolving]
  - Pain [Recovering/Resolving]
  - Ocular hyperaemia [Recovering/Resolving]
  - Product use in unapproved indication [Unknown]
